FAERS Safety Report 7813965-2 (Version None)
Quarter: 2011Q4

REPORT INFORMATION
  Report Type: 
  Country: None (occurrence: None)
  Receive Date: 20111014
  Receipt Date: 20111010
  Transmission Date: 20120403
  Serious: Yes (Life-Threatening, Other)
  Sender: FDA-Public Use
  Company Number: FR-TYCO HEALTHCARE/MALLINCKRODT-T201102031

PATIENT
  Age: 22 Year
  Sex: Female
  Weight: 65 kg

DRUGS (4)
  1. TRAMADOL HCL [Suspect]
     Indication: EUPHORIC MOOD
     Dosage: UP TO TEN TABLETS PER DAY
  2. TRAMADOL HCL [Suspect]
     Dosage: INTERMITTENT CONSUMPTION
  3. KETOCONAZOLE [Suspect]
     Indication: VAGINAL INFECTION
     Dosage: UNK
  4. TRAMADOL HCL [Suspect]
     Indication: DYSMENORRHOEA
     Dosage: TOOK 90 OF THE 50 MG CAPSULES

REACTIONS (11)
  - INHIBITORY DRUG INTERACTION [None]
  - CARDIOTOXICITY [None]
  - RENAL FAILURE [None]
  - HYPOTHERMIA [None]
  - CARDIAC ARREST [None]
  - DRUG DEPENDENCE [None]
  - INTENTIONAL OVERDOSE [None]
  - LOSS OF CONSCIOUSNESS [None]
  - HEPATIC FAILURE [None]
  - COAGULOPATHY [None]
  - SHOCK [None]
